FAERS Safety Report 19705842 (Version 5)
Quarter: 2021Q3

REPORT INFORMATION
  Report Type: Spontaneous
  Country: US (occurrence: US)
  Receive Date: 20210817
  Receipt Date: 20210930
  Transmission Date: 20211014
  Serious: Yes (Other)
  Sender: FDA-Public Use
  Company Number: US-BEH-2021134888

PATIENT
  Age: 25 Year
  Sex: Male
  Weight: 69.9 kg

DRUGS (7)
  1. METHYLPREDNISOLONE. [Concomitant]
     Active Substance: METHYLPREDNISOLONE
     Dosage: 40 MILLIGRAM, SINGLE
     Route: 040
     Dates: start: 20210809, end: 20210809
  2. ACETAMINOPHEN. [Concomitant]
     Active Substance: ACETAMINOPHEN
     Dosage: 650 MILLIGRAM, SINGLE
     Route: 048
     Dates: start: 20210809, end: 20210809
  3. DIPHENHYDRAMINE. [Concomitant]
     Active Substance: DIPHENHYDRAMINE
     Dosage: 50 MILLIGRAM, SINGLE
     Route: 048
     Dates: start: 20210809, end: 20210809
  4. PRIVIGEN [Suspect]
     Active Substance: HUMAN IMMUNOGLOBULIN G
     Dosage: 50 GM X 3 SPLIT DOSES (6 DOSES TOTAL)
     Route: 041
     Dates: start: 202008, end: 202011
  5. PRIVIGEN [Suspect]
     Active Substance: HUMAN IMMUNOGLOBULIN G
     Dosage: 50 GM X 5 DOSES
     Route: 041
     Dates: start: 20210413, end: 20210712
  6. PRIVIGEN [Suspect]
     Active Substance: HUMAN IMMUNOGLOBULIN G
     Indication: EPSTEIN-BARR VIRAEMIA
     Dosage: 45 GRAM IN 500 ML
     Route: 041
     Dates: start: 20210809, end: 20210809
  7. PRIVIGEN [Suspect]
     Active Substance: HUMAN IMMUNOGLOBULIN G
     Dosage: 50 GM X 5 SPLIT DOSES (10 DOSES TOTAL)
     Route: 041
     Dates: start: 201910, end: 202002

REACTIONS (4)
  - Off label use [Unknown]
  - Incorrect dose administered [Unknown]
  - No adverse event [Unknown]
  - Urticaria [Unknown]

NARRATIVE: CASE EVENT DATE: 20210809
